FAERS Safety Report 12336614 (Version 1)
Quarter: 2016Q2

REPORT INFORMATION
  Report Type: Spontaneous
  Country: US (occurrence: None)
  Receive Date: 20160504
  Receipt Date: 20160504
  Transmission Date: 20160815
  Serious: No
  Sender: FDA-Public Use
  Company Number: None

PATIENT
  Age: 70 Year
  Sex: Female
  Weight: 62.14 kg

DRUGS (8)
  1. CO-Q10 [Concomitant]
  2. SIMVASTATIN 20 MG [Suspect]
     Active Substance: SIMVASTATIN
     Indication: BLOOD CHOLESTEROL INCREASED
     Dosage: 90 DAY SUPPLY 1 PILL NIGHTLY ONCE DAILY ORALLY
     Route: 048
     Dates: start: 20151114, end: 20160313
  3. VIT. D [Concomitant]
  4. ONE DAY SUPPLEMENT [Concomitant]
  5. FLAXSEED [Concomitant]
     Active Substance: FLAX SEED
  6. NEXIUM [Concomitant]
     Active Substance: ESOMEPRAZOLE MAGNESIUM
  7. L-THYROXINE [Concomitant]
     Active Substance: LEVOTHYROXINE
  8. VIT. B12 [Concomitant]

REACTIONS (2)
  - Myalgia [None]
  - Product substitution issue [None]

NARRATIVE: CASE EVENT DATE: 20151114
